FAERS Safety Report 14295949 (Version 3)
Quarter: 2018Q1

REPORT INFORMATION
  Report Type: Report from Study
  Country: BR (occurrence: BR)
  Receive Date: 20171218
  Receipt Date: 20180328
  Transmission Date: 20180509
  Serious: Yes (Hospitalization, Other)
  Sender: FDA-Public Use
  Company Number: PHHY2017BR188098

PATIENT
  Sex: Female
  Weight: 85 kg

DRUGS (4)
  1. PREGABALIN. [Concomitant]
     Active Substance: PREGABALIN
     Indication: GUILLAIN-BARRE SYNDROME
     Dosage: 2 DF, QD (START 5 YEAR AGO)
  2. ACLASTA [Suspect]
     Active Substance: ZOLEDRONIC ACID
     Indication: SPINAL PAIN
     Dosage: 1 DF (5MG/100ML), Q12MO
     Route: 042
  3. ACLASTA [Suspect]
     Active Substance: ZOLEDRONIC ACID
     Indication: GUILLAIN-BARRE SYNDROME
  4. PREDNISONE. [Concomitant]
     Active Substance: PREDNISONE
     Indication: GUILLAIN-BARRE SYNDROME
     Dosage: 1 DF, QD START 5 YEAR AGO
     Route: 048

REACTIONS (18)
  - Arthralgia [Recovering/Resolving]
  - Osteoarthritis [Recovering/Resolving]
  - Gait inability [Recovering/Resolving]
  - Back pain [Unknown]
  - Spinal pain [Unknown]
  - Bone pain [Unknown]
  - Paraesthesia [Recovering/Resolving]
  - Neck pain [Recovering/Resolving]
  - Hypertension [Recovering/Resolving]
  - Cataract [Recovering/Resolving]
  - General physical health deterioration [Unknown]
  - Monoplegia [Recovering/Resolving]
  - Guillain-Barre syndrome [Recovering/Resolving]
  - Condition aggravated [Recovering/Resolving]
  - Weight increased [Recovering/Resolving]
  - Product use in unapproved indication [Unknown]
  - Hypoaesthesia [Not Recovered/Not Resolved]
  - Eye disorder [Unknown]
